FAERS Safety Report 10057173 (Version 3)
Quarter: 2014Q2

REPORT INFORMATION
  Report Type: Spontaneous
  Country: US (occurrence: US)
  Receive Date: 20140403
  Receipt Date: 20140612
  Transmission Date: 20141212
  Serious: Yes (Other)
  Sender: FDA-Public Use
  Company Number: US-TEVA-473252USA

PATIENT
  Age: 28 Year
  Sex: Female
  Weight: 89.44 kg

DRUGS (2)
  1. PARAGARD 380A [Suspect]
     Indication: CONTRACEPTION
     Route: 015
     Dates: start: 20130927, end: 20131126
  2. PARAGARD 380A [Suspect]
     Route: 015
     Dates: start: 20131126, end: 20140331

REACTIONS (3)
  - Device dislocation [Recovered/Resolved]
  - Pregnancy with contraceptive device [Unknown]
  - Drug ineffective [Unknown]
